FAERS Safety Report 8615556-2 (Version None)
Quarter: 2012Q3

REPORT INFORMATION
  Report Type: 
  Country: None (occurrence: None)
  Receive Date: 20120823
  Receipt Date: 20120810
  Transmission Date: 20120928
  Serious: Yes (Hospitalization)
  Sender: FDA-Public Use
  Company Number: US-ARROW-2012-14409

PATIENT
  Age: 19 Year
  Sex: Male

DRUGS (2)
  1. LAMOTRIGINE [Suspect]
     Indication: PRODUCT USED FOR UNKNOWN INDICATION
     Dosage: UNK
     Route: 048
  2. CITALOPRAM HYDROBROMIDE [Suspect]
     Indication: PRODUCT USED FOR UNKNOWN INDICATION
     Dosage: LARGE DOSE
     Route: 048

REACTIONS (5)
  - INTENTIONAL OVERDOSE [None]
  - BUNDLE BRANCH BLOCK RIGHT [None]
  - ELECTROCARDIOGRAM QRS COMPLEX PROLONGED [None]
  - VENTRICULAR TACHYCARDIA [None]
  - SEROTONIN SYNDROME [None]
